FAERS Safety Report 16666072 (Version 1)
Quarter: 2019Q3

REPORT INFORMATION
  Report Type: Spontaneous
  Country: US (occurrence: US)
  Receive Date: 20190805
  Receipt Date: 20190805
  Transmission Date: 20191004
  Serious: Yes (Other)
  Sender: FDA-Public Use
  Company Number: US-HETERO-HET2019US01069

PATIENT
  Sex: Male
  Weight: 104.31 kg

DRUGS (2)
  1. METOPROLOL. [Concomitant]
     Active Substance: METOPROLOL
     Indication: PRODUCT USED FOR UNKNOWN INDICATION
     Dosage: 25 MG
     Route: 065
  2. LOSARTAN. [Suspect]
     Active Substance: LOSARTAN
     Indication: BLOOD PRESSURE MEASUREMENT
     Dosage: 50 MG, Q.D.
     Route: 065
     Dates: start: 20190120, end: 2019

REACTIONS (7)
  - Chromaturia [Unknown]
  - Hyperhidrosis [Unknown]
  - Tremor [Unknown]
  - Feeling abnormal [Unknown]
  - Renal disorder [Unknown]
  - Diarrhoea [Unknown]
  - Weight decreased [Unknown]
